FAERS Safety Report 6223113-0 (Version None)
Quarter: 2009Q2

REPORT INFORMATION
  Report Type: 
  Country: None (occurrence: None)
  Receive Date: 20090609
  Receipt Date: 20090528
  Transmission Date: 20091009
  Serious: Yes (Hospitalization)
  Sender: FDA-Public Use
  Company Number: PAR_02967_2009

PATIENT
  Sex: Male

DRUGS (9)
  1. IBUPROFEN [Suspect]
     Indication: PAIN
     Dosage: (DF ORAL)
     Route: 048
  2. RIVAROXABAN [Suspect]
     Indication: DEEP VEIN THROMBOSIS
     Dosage: 40 MG ORAL
     Route: 048
     Dates: start: 20090423, end: 20090428
  3. RIVAROXABAN [Suspect]
     Indication: PULMONARY EMBOLISM
     Dosage: 40 MG ORAL
     Route: 048
     Dates: start: 20090423, end: 20090428
  4. CITROL /00582602/ [Concomitant]
  5. FUROSEMID /00032601/ [Concomitant]
  6. VALSARTAN [Concomitant]
  7. HYDROXYUREA [Concomitant]
  8. PANTOLOC /01263201/ [Concomitant]
  9. PARACETAMOL [Concomitant]

REACTIONS (1)
  - SPONTANEOUS HAEMATOMA [None]
